FAERS Safety Report 25893773 (Version 1)
Quarter: 2025Q4

REPORT INFORMATION
  Report Type: Report from Study
  Country: AU (occurrence: AU)
  Receive Date: 20251008
  Receipt Date: 20251008
  Transmission Date: 20260117
  Serious: Yes (Disabling, Other)
  Sender: SAMSUNG BIOEPIS
  Company Number: AU-SAMSUNG BIOEPIS-SB-2025-33321

PATIENT
  Sex: Female

DRUGS (1)
  1. HADLIMA [Suspect]
     Active Substance: ADALIMUMAB-BWWD
     Indication: Birdshot chorioretinopathy
     Dosage: 40 MG/0.8 ML
     Dates: start: 20250720

REACTIONS (5)
  - Tremor [Recovering/Resolving]
  - Therapeutic response shortened [Unknown]
  - Loss of personal independence in daily activities [Recovering/Resolving]
  - Photopsia [Recovering/Resolving]
  - Off label use [Unknown]
